FAERS Safety Report 8225406-4 (Version None)
Quarter: 2012Q1

REPORT INFORMATION
  Report Type: 
  Country: None (occurrence: None)
  Receive Date: 20120321
  Receipt Date: 20120313
  Transmission Date: 20120608
  Serious: No
  Sender: FDA-Public Use
  Company Number: BR-MEDIMMUNE-MEDI-0013721

PATIENT
  Sex: Male
  Weight: 6.4 kg

DRUGS (4)
  1. RANITIDINE [Concomitant]
  2. SYNAGIS [Suspect]
     Dates: start: 20090908, end: 20100824
  3. FUROSEMIDE [Concomitant]
  4. DOMPERIDONE [Concomitant]

REACTIONS (2)
  - PYREXIA [None]
  - DYSPNOEA [None]
